FAERS Safety Report 17664469 (Version 1)
Quarter: 2020Q2

REPORT INFORMATION
  Report Type: Spontaneous
  Country: JP (occurrence: JP)
  Receive Date: 20200414
  Receipt Date: 20200414
  Transmission Date: 20200713
  Serious: Yes (Other)
  Sender: FDA-Public Use
  Company Number: JP-SUN PHARMACEUTICAL INDUSTRIES LTD-2020RR-243933

PATIENT
  Age: 70 Year
  Sex: Male

DRUGS (6)
  1. OXALIPLATIN. [Suspect]
     Active Substance: OXALIPLATIN
     Indication: CHEMOTHERAPY
     Dosage: ON DAY 1, EVERY 3
     Route: 065
     Dates: start: 201701, end: 201705
  2. PACLITAXEL. [Suspect]
     Active Substance: PACLITAXEL
     Indication: CHEMOTHERAPY
     Dosage: ON DAYS 1, 8, AND 15, EVERY 4 WEEKS
     Route: 065
  3. INSULIN LISPRO [Concomitant]
     Active Substance: INSULIN LISPRO
     Indication: PRODUCT USED FOR UNKNOWN INDICATION
     Dosage: 16 U, DAILY
     Route: 065
  4. IRINOTECAN [Suspect]
     Active Substance: IRINOTECAN
     Indication: CHEMOTHERAPY
     Dosage: ON DAYS 1, 8, AND 15, EVERY 4 WEEKS
     Route: 065
     Dates: start: 201805, end: 201809
  5. NIVOLUMAB [Suspect]
     Active Substance: NIVOLUMAB
     Indication: PRODUCT USED FOR UNKNOWN INDICATION
     Dosage: 3 MILLIGRAM/KILOGRAM (145 MG) EVERY 2 WEEK
     Dates: start: 201801
  6. TRASTUZUMAB. [Suspect]
     Active Substance: TRASTUZUMAB
     Indication: PRODUCT USED FOR UNKNOWN INDICATION
     Dosage: 290 MILLIGRAM, 3/WEEK
     Route: 065
     Dates: start: 201706, end: 201712

REACTIONS (5)
  - Decreased appetite [Unknown]
  - Disease progression [Unknown]
  - Lymphadenopathy [Unknown]
  - Weight decreased [Unknown]
  - Bone marrow failure [Unknown]
